FAERS Safety Report 14812738 (Version 1)
Quarter: 2018Q2

REPORT INFORMATION
  Report Type: Report from Study
  Country: GB (occurrence: GB)
  Receive Date: 20180426
  Receipt Date: 20180426
  Transmission Date: 20180711
  Serious: Yes (Other)
  Sender: FDA-Public Use
  Company Number: PHHY2018GB069729

PATIENT
  Sex: Male

DRUGS (2)
  1. COSENTYX [Suspect]
     Active Substance: SECUKINUMAB
     Dosage: 300 MG (2 PREFILLED PENS), QMO (MONTHLY FROM  WEEK 4)
     Route: 058
  2. COSENTYX [Suspect]
     Active Substance: SECUKINUMAB
     Indication: PSORIATIC ARTHROPATHY
     Dosage: 300 MG (2 PRE-FILLED PENS), QW (ON WEEKS 1, 2, AND 3)
     Route: 058
     Dates: start: 20180223

REACTIONS (5)
  - Infection [Unknown]
  - Rhinorrhoea [Unknown]
  - Lower respiratory tract infection [Unknown]
  - Malaise [Unknown]
  - Dizziness [Unknown]
